FAERS Safety Report 5372840-6 (Version None)
Quarter: 2007Q2

REPORT INFORMATION
  Report Type: 
  Country: None (occurrence: None)
  Receive Date: 20070620
  Receipt Date: 20050630
  Transmission Date: 20071010
  Serious: Yes (Other)
  Sender: FDA-Public Use
  Company Number: 421054

PATIENT
  Age: 57 Year
  Sex: Male

DRUGS (2)
  1. ROFERON-A [Suspect]
     Indication: DRUG USE FOR UNKNOWN INDICATION
  2. CLOZAPINE [Suspect]
     Indication: SCHIZOPHRENIA
     Dosage: 400 MG DAILY ORAL
     Route: 048
     Dates: start: 20000315, end: 20050609

REACTIONS (1)
  - LEUKOPENIA [None]
